FAERS Safety Report 5423129-8 (Version None)
Quarter: 2007Q3

REPORT INFORMATION
  Report Type: 
  Country: None (occurrence: None)
  Receive Date: 20070821
  Receipt Date: 20070622
  Transmission Date: 20080115
  Serious: Yes (Death, Life-Threatening, Hospitalization)
  Sender: FDA-Public Use
  Company Number: T07-UKI-02711-01

PATIENT
  Age: 78 Year
  Sex: Male

DRUGS (11)
  1. MEMANTINE HCL [Suspect]
     Indication: DEMENTIA
     Dates: start: 20070328, end: 20070617
  2. ASPIRIN [Concomitant]
  3. SOTALOL HYDROCHLORIDE [Concomitant]
  4. GLICLAZINE [Concomitant]
  5. FYBOGEL (ISPAGHULA) [Concomitant]
  6. SENNA [Concomitant]
  7. HYDROXOCOBALAMIN [Concomitant]
  8. DONEPEZIL HCL [Concomitant]
  9. GALANTAMINE HYDROBROMIDE [Concomitant]
  10. RAMIPRIL [Concomitant]
  11. FUROSEMIDE [Concomitant]

REACTIONS (3)
  - CEREBROVASCULAR ACCIDENT [None]
  - FALL [None]
  - UNRESPONSIVE TO STIMULI [None]
